FAERS Safety Report 6878203-6 (Version None)
Quarter: 2010Q3

REPORT INFORMATION
  Report Type: 
  Country: None (occurrence: None)
  Receive Date: 20100728
  Receipt Date: 20100715
  Transmission Date: 20110219
  Serious: Yes (Other)
  Sender: FDA-Public Use
  Company Number: US-PFIZER INC-2010086776

PATIENT
  Sex: Female
  Weight: 49.887 kg

DRUGS (9)
  1. CHANTIX [Suspect]
     Indication: SMOKING CESSATION THERAPY
     Dosage: 0.5 MG, 1X/DAY
     Route: 048
     Dates: start: 20100706, end: 20100701
  2. CHANTIX [Suspect]
     Dosage: 0.5 MG, 2X/DAY
     Route: 048
     Dates: start: 20100701, end: 20100711
  3. NORVASC [Concomitant]
     Indication: HYPERTENSION
     Dosage: 5 MG, 1X/DAY
     Route: 048
  4. ACETYLSALICYLIC ACID [Concomitant]
     Indication: HYPERTENSION
     Dosage: UNK, DAILY
     Route: 048
  5. ACETYLSALICYLIC ACID [Concomitant]
     Indication: FAMILIAL RISK FACTOR
  6. PLAQUENIL [Concomitant]
     Indication: SYSTEMIC LUPUS ERYTHEMATOSUS
     Dosage: 200 MG, 2X/DAY
  7. ALBUTEROL [Concomitant]
     Indication: ASTHMA
     Dosage: 8 MG, DAILY
  8. MONTELUKAST [Concomitant]
     Indication: ASTHMA
     Dosage: 10 MG, 1X/DAY
  9. ALLEGRA [Concomitant]
     Indication: MULTIPLE ALLERGIES
     Dosage: 180 MG, 1X/DAY

REACTIONS (6)
  - DEREALISATION [None]
  - FEELING ABNORMAL [None]
  - HALLUCINATION [None]
  - MENTAL DISORDER [None]
  - MOOD SWINGS [None]
  - SELF-INJURIOUS IDEATION [None]
